FAERS Safety Report 13665061 (Version 1)
Quarter: 2017Q2

REPORT INFORMATION
  Report Type: Spontaneous
  Country: TR (occurrence: US)
  Receive Date: 20170619
  Receipt Date: 20170619
  Transmission Date: 20170830
  Serious: Yes (Death)
  Sender: FDA-Public Use
  Company Number: None

PATIENT
  Age: 7 Year
  Sex: Male
  Weight: 24 kg

DRUGS (1)
  1. ANAKINRA [Suspect]
     Active Substance: ANAKINRA

REACTIONS (8)
  - Nodule [None]
  - Cough [None]
  - Paratracheal lymphadenopathy [None]
  - Bronchial wall thickening [None]
  - Pyrexia [None]
  - Hilar lymphadenopathy [None]
  - Lung infiltration [None]
  - Respiratory distress [None]

NARRATIVE: CASE EVENT DATE: 20150301
